FAERS Safety Report 19369455 (Version 2)
Quarter: 2021Q2

REPORT INFORMATION
  Report Type: Spontaneous
  Country: FI (occurrence: FI)
  Receive Date: 20210603
  Receipt Date: 20210615
  Transmission Date: 20210717
  Serious: Yes (Hospitalization, Other)
  Sender: FDA-Public Use
  Company Number: FI-TAKEDA-2021TUS034722

PATIENT
  Sex: Female

DRUGS (13)
  1. PENTASA [Concomitant]
     Active Substance: MESALAMINE
     Dosage: UNK
  2. PREGABALIN ORION [Concomitant]
     Dosage: UNK
  3. HISTEC [Concomitant]
     Active Substance: CETIRIZINE HYDROCHLORIDE
     Dosage: UNK
  4. CALCICHEW D3 EXTRA APPELSIINI [Concomitant]
     Dosage: UNK
  5. VENTOLIN [Concomitant]
     Active Substance: ALBUTEROL SULFATE
     Dosage: UNK
  6. METOPROLIN [Concomitant]
     Dosage: UNK
  7. ENTYVIO [Suspect]
     Active Substance: VEDOLIZUMAB
     Indication: CROHN^S DISEASE
     Dosage: 300 MILLIGRAM
     Route: 042
     Dates: start: 20210407
  8. SOMAC [Concomitant]
     Active Substance: PANTOPRAZOLE SODIUM
     Dosage: UNK
  9. DESLORATADINE ACTAVIS [Concomitant]
     Active Substance: DESLORATADINE
     Dosage: UNK
  10. VI?SIBLIN [Concomitant]
     Dosage: UNK
  11. OPAMOX [Concomitant]
     Active Substance: OXAZEPAM
     Dosage: UNK
  12. TENOX [Concomitant]
     Dosage: UNK
  13. AVAMYS [Concomitant]
     Active Substance: FLUTICASONE FUROATE
     Dosage: UNK

REACTIONS (1)
  - Organising pneumonia [Recovering/Resolving]

NARRATIVE: CASE EVENT DATE: 20210419
